FAERS Safety Report 5897048-7 (Version None)
Quarter: 2008Q3

REPORT INFORMATION
  Report Type: 
  Country: None (occurrence: None)
  Receive Date: 20080924
  Receipt Date: 20080917
  Transmission Date: 20090109
  Serious: Yes (Hospitalization, Disabling)
  Sender: FDA-Public Use
  Company Number: GB-MERCK-0809GBR00085

PATIENT
  Sex: Female
  Weight: 59 kg

DRUGS (3)
  1. ZOCOR [Suspect]
     Indication: HYPERCHOLESTEROLAEMIA
     Route: 048
     Dates: start: 20080310, end: 20080424
  2. ASPIRIN [Concomitant]
     Route: 048
     Dates: start: 20080310
  3. ENALAPRIL MALEATE [Concomitant]
     Indication: HYPERTENSION
     Route: 048

REACTIONS (2)
  - CHEST PAIN [None]
  - PAIN IN EXTREMITY [None]
